FAERS Safety Report 20959568 (Version 1)
Quarter: 2022Q2

REPORT INFORMATION
  Report Type: Spontaneous
  Country: JP (occurrence: JP)
  Receive Date: 20220614
  Receipt Date: 20220614
  Transmission Date: 20220721
  Serious: Yes (Other)
  Sender: FDA-Public Use
  Company Number: JP-UCBJ-CD202205204UCBPHAPROD

PATIENT
  Age: 38 Year
  Sex: Female

DRUGS (1)
  1. CIMZIA [Suspect]
     Active Substance: CERTOLIZUMAB PEGOL
     Indication: Rheumatoid arthritis
     Dosage: UNK
     Route: 058

REACTIONS (6)
  - Premature delivery [Unknown]
  - Gestational hypertension [Unknown]
  - Renal disorder in pregnancy [Unknown]
  - Caesarean section [Unknown]
  - Obesity [Unknown]
  - Maternal exposure during pregnancy [Unknown]
